FAERS Safety Report 11793895 (Version 1)
Quarter: 2015Q4

REPORT INFORMATION
  Report Type: Spontaneous
  Country: GR (occurrence: GR)
  Receive Date: 20151202
  Receipt Date: 20151202
  Transmission Date: 20160305
  Serious: Yes (Other)
  Sender: FDA-Public Use
  Company Number: GR-PFIZER INC-2015403066

PATIENT
  Age: 37 Year
  Sex: Male

DRUGS (4)
  1. TAVOR [Concomitant]
     Active Substance: LORAZEPAM
     Dosage: UNK
     Route: 048
  2. LYRICA [Suspect]
     Active Substance: PREGABALIN
     Indication: GENERALISED ANXIETY DISORDER
     Dosage: 150 MG, 3X/DAY
     Route: 048
     Dates: start: 201507, end: 201508
  3. AKINETON [Concomitant]
     Active Substance: BIPERIDEN HYDROCHLORIDE
     Dosage: UNK
     Route: 048
  4. ALOPERIDIN /00027401/ [Concomitant]
     Dosage: UNK
     Route: 048

REACTIONS (3)
  - Asterixis [Recovered/Resolved]
  - Dystonia [Recovered/Resolved]
  - Dysarthria [Recovered/Resolved]

NARRATIVE: CASE EVENT DATE: 201508
